FAERS Safety Report 19934110 (Version 4)
Quarter: 2023Q2

REPORT INFORMATION
  Report Type: Spontaneous
  Country: PK (occurrence: PK)
  Receive Date: 20211008
  Receipt Date: 20230613
  Transmission Date: 20230721
  Serious: Yes (Other)
  Sender: FDA-Public Use
  Company Number: PK-PFIZER INC-2021749829

PATIENT
  Age: 22 Year
  Sex: Male
  Weight: 65 kg

DRUGS (11)
  1. ENBREL [Suspect]
     Active Substance: ETANERCEPT
     Indication: Ankylosing spondylitis
     Dosage: 50 MG,EVERY 15 DAYS
     Route: 058
     Dates: start: 20210621
  2. ENBREL [Suspect]
     Active Substance: ETANERCEPT
     Dosage: 50 MG, FORTNIGHTLY
     Route: 065
  3. ENBREL [Suspect]
     Active Substance: ETANERCEPT
     Dosage: 50 MILLIGRAM, EVERY 10 DAYS
     Route: 058
  4. ENBREL [Suspect]
     Active Substance: ETANERCEPT
     Dosage: 50 MILLIGRAM, QWK
     Route: 058
  5. METHYLCOBALAMIN [Concomitant]
     Active Substance: METHYLCOBALAMIN
     Dosage: UNK
     Route: 065
  6. ETORICOXIB [Concomitant]
     Active Substance: ETORICOXIB
     Dosage: 90 MILLIGRAM, QD
  7. XOBIX [Concomitant]
     Dosage: 1 DF, 1X/DAY AFTER BREAKFAST
  8. ADFOLIC [Concomitant]
     Dosage: 1 DF, 1X/DAY AFTER BREAKFAST
  9. PANADOL [Concomitant]
     Active Substance: ACETAMINOPHEN
     Dosage: 1 DF, 2X/DAY AS PER NEED
  10. DX3 [Concomitant]
     Dosage: 1 DF, MONTHLY FOR 3 MONTHS
  11. TIZANIDINE [Concomitant]
     Active Substance: TIZANIDINE
     Dosage: UNK

REACTIONS (11)
  - Mycobacterium tuberculosis complex test positive [Unknown]
  - Musculoskeletal stiffness [Not Recovered/Not Resolved]
  - Neck pain [Unknown]
  - Immune thrombocytopenia [Unknown]
  - Back pain [Not Recovered/Not Resolved]
  - Off label use [Unknown]
  - Condition aggravated [Unknown]
  - Fatigue [Not Recovered/Not Resolved]
  - Arthralgia [Unknown]
  - Pain [Unknown]
  - Leukopenia [Not Recovered/Not Resolved]

NARRATIVE: CASE EVENT DATE: 20230401
